FAERS Safety Report 10181734 (Version 1)
Quarter: 2014Q2

REPORT INFORMATION
  Report Type: Spontaneous
  Country: FR (occurrence: FR)
  Receive Date: 20140519
  Receipt Date: 20140519
  Transmission Date: 20141212
  Serious: Yes (Other)
  Sender: FDA-Public Use
  Company Number: FR-ABBVIE-14P-056-1238088-00

PATIENT
  Sex: Female

DRUGS (2)
  1. HUMIRA [Suspect]
     Indication: CROHN^S DISEASE
     Route: 058
  2. TRINORDIOL [Suspect]
     Indication: CONTRACEPTION
     Route: 048

REACTIONS (6)
  - Abortion induced [Unknown]
  - Unwanted pregnancy [Recovered/Resolved]
  - Pregnancy on contraceptive [Unknown]
  - Crohn^s disease [Unknown]
  - Small intestinal stenosis [Unknown]
  - Drug effect decreased [Unknown]
